FAERS Safety Report 7384229-9 (Version None)
Quarter: 2011Q1

REPORT INFORMATION
  Report Type: 
  Country: None (occurrence: None)
  Receive Date: 20110323
  Receipt Date: 20110307
  Transmission Date: 20110831
  Serious: Yes (Other)
  Sender: FDA-Public Use
  Company Number: IPC201103-000219

PATIENT
  Sex: Male

DRUGS (2)
  1. REGLAN [Suspect]
     Dosage: ORAL
     Route: 048
     Dates: start: 19890301, end: 19961201
  2. METOCLOPRAMIDE HYDROCHLORIDE [Suspect]
     Dosage: ORAL
     Route: 048
     Dates: start: 19890301, end: 19961201

REACTIONS (1)
  - MUSCLE TWITCHING [None]
